FAERS Safety Report 6466143-6 (Version None)
Quarter: 2009Q4

REPORT INFORMATION
  Report Type: 
  Country: None (occurrence: None)
  Receive Date: 20091127
  Receipt Date: 20091118
  Transmission Date: 20100525
  Serious: Yes (Death, Hospitalization, Other)
  Sender: FDA-Public Use
  Company Number: CERZ-1000847

PATIENT
  Age: 70 Year
  Sex: Female
  Weight: 96.3 kg

DRUGS (1)
  1. CEREZYME [Suspect]
     Indication: GAUCHER'S DISEASE
     Dosage: 5000 U, Q4W, INTRAVENOUS
     Route: 042
     Dates: end: 20091117

REACTIONS (4)
  - HAEMOGLOBIN DECREASED [None]
  - MALAISE [None]
  - SEPSIS [None]
  - URINARY TRACT INFECTION [None]
